FAERS Safety Report 13194098 (Version 1)
Quarter: 2017Q1

REPORT INFORMATION
  Report Type: Spontaneous
  Country: PH (occurrence: PH)
  Receive Date: 20170207
  Receipt Date: 20170207
  Transmission Date: 20170428
  Serious: Yes (Hospitalization)
  Sender: FDA-Public Use
  Company Number: PH-JNJFOC-20170205637

PATIENT
  Age: 80 Year
  Sex: Female

DRUGS (1)
  1. XARELTO [Suspect]
     Active Substance: RIVAROXABAN
     Indication: ATRIAL FIBRILLATION
     Route: 048
     Dates: start: 2014, end: 20170129

REACTIONS (5)
  - Haemorrhoids [Unknown]
  - Gastritis haemorrhagic [Unknown]
  - Abdominal pain [Recovered/Resolved]
  - Haematochezia [Recovered/Resolved]
  - Diverticulum [Unknown]

NARRATIVE: CASE EVENT DATE: 201701
